FAERS Safety Report 5756288-8 (Version None)
Quarter: 2008Q2

REPORT INFORMATION
  Report Type: 
  Country: None (occurrence: None)
  Receive Date: 20080602
  Receipt Date: 20080602
  Transmission Date: 20081010
  Serious: Yes (Hospitalization)
  Sender: FDA-Public Use
  Company Number: None

PATIENT
  Sex: Male
  Weight: 96 kg

DRUGS (4)
  1. THYMOGLOBULIN [Suspect]
     Indication: MULTIPLE MYELOMA
     Dosage: 3MG/KG, QD IV
     Route: 042
     Dates: start: 20070706
  2. THYMOGLOBULIN [Suspect]
     Indication: MULTIPLE MYELOMA
     Dosage: 3MG/KG, QD IV
     Route: 042
     Dates: start: 20070708
  3. THYMOGLOBULIN [Suspect]
     Indication: MULTIPLE MYELOMA
     Dosage: 3MG/KG, QD IV
     Route: 042
     Dates: start: 20070710
  4. THYMOGLOBULIN [Suspect]
     Indication: MULTIPLE MYELOMA
     Dosage: 3MG/KG, QD IV
     Route: 042
     Dates: start: 20070712

REACTIONS (5)
  - DYSPNOEA [None]
  - INFECTION [None]
  - INFUSION RELATED REACTION [None]
  - PYREXIA [None]
  - RASH [None]
